FAERS Safety Report 25128969 (Version 1)
Quarter: 2025Q1

REPORT INFORMATION
  Report Type: Spontaneous
  Country: US (occurrence: None)
  Receive Date: 20250327
  Receipt Date: 20250327
  Transmission Date: 20250408
  Serious: Yes (Hospitalization, Other)
  Sender: ALEXION PHARMACEUTICALS
  Company Number: US-AstraZeneca-2015SE76066

PATIENT
  Age: 69 Year
  Weight: 106.59 kg

DRUGS (6)
  1. SYMBICORT [Suspect]
     Active Substance: BUDESONIDE\FORMOTEROL FUMARATE DIHYDRATE
     Indication: Asthma
     Dosage: 160 4.5 UG, 1 PUFF TWICE A DAY
  2. LISINOPRIL AND HYDROCHLOROTHIAZIDE [Suspect]
     Active Substance: HYDROCHLOROTHIAZIDE\LISINOPRIL
     Indication: Blood pressure abnormal
     Dosage: 40 MILLIGRAM, QD
  3. LOSARTAN POTASSIUM [Concomitant]
     Active Substance: LOSARTAN POTASSIUM
     Indication: Blood pressure abnormal
  4. ADVAIR HFA [Concomitant]
     Active Substance: FLUTICASONE PROPIONATE\SALMETEROL XINAFOATE
  5. NIACIN [Concomitant]
     Active Substance: NIACIN
     Indication: Blood pressure abnormal
  6. NIACIN [Concomitant]
     Active Substance: NIACIN
     Indication: Blood cholesterol abnormal

REACTIONS (11)
  - Carotid artery aneurysm [Unknown]
  - Dysphonia [Unknown]
  - Stomatitis [Unknown]
  - Sensation of foreign body [Unknown]
  - Throat irritation [Unknown]
  - Aggression [Unknown]
  - Sleep disorder due to a general medical condition [Unknown]
  - Drug hypersensitivity [Recovered/Resolved]
  - Wheezing [Unknown]
  - Cough [Unknown]
  - Intentional product misuse [Unknown]
